FAERS Safety Report 7967401-6 (Version None)
Quarter: 2011Q4

REPORT INFORMATION
  Report Type: 
  Country: None (occurrence: None)
  Receive Date: 20111209
  Receipt Date: 20111124
  Transmission Date: 20120403
  Serious: Yes (Other)
  Sender: FDA-Public Use
  Company Number: SE-CELGENEUS-150-C5013-11113557

PATIENT
  Sex: Female
  Weight: 82.9 kg

DRUGS (12)
  1. DEXAMETHASONE [Suspect]
     Dosage: 40 MILLIGRAM
     Route: 065
     Dates: start: 20111122, end: 20111124
  2. LENALIDOMIDE [Suspect]
     Indication: MULTIPLE MYELOMA
     Dosage: 25 MILLIGRAM
     Route: 048
     Dates: start: 20100831
  3. DEXAMETHASONE [Suspect]
     Indication: MULTIPLE MYELOMA
     Dosage: 40 MILLIGRAM
     Route: 065
     Dates: start: 20100831
  4. OXYCODONE HCL [Concomitant]
     Indication: CHEST PAIN
  5. OXYCONTIN [Concomitant]
     Indication: BACK PAIN
     Route: 065
     Dates: start: 20110802
  6. PAMIDRONSYRA [Concomitant]
     Indication: PROPHYLAXIS
     Route: 065
     Dates: start: 20100809
  7. LENALIDOMIDE [Suspect]
     Dosage: 25 MILLIGRAM
     Route: 048
     Dates: start: 20111122, end: 20111124
  8. AMILORD/HYDROKLOTIAZID [Concomitant]
     Indication: HYPERTENSION
     Dosage: 5/50
     Route: 065
     Dates: start: 20100420
  9. METOPROLOL TARTRATE [Concomitant]
     Indication: HYPERTENSION
     Route: 065
     Dates: start: 20100420
  10. DALTEPARINNATRIUM [Concomitant]
     Indication: PROPHYLAXIS
     Route: 065
     Dates: start: 20100831
  11. OXYCODONE HCL [Concomitant]
     Indication: BACK PAIN
     Route: 065
     Dates: start: 20100723
  12. ACETAMINOPHEN [Concomitant]
     Indication: BACK PAIN
     Route: 065
     Dates: start: 20100817

REACTIONS (1)
  - SQUAMOUS CELL CARCINOMA OF SKIN [None]
